FAERS Safety Report 8199557-7 (Version None)
Quarter: 2012Q1

REPORT INFORMATION
  Report Type: 
  Country: None (occurrence: None)
  Receive Date: 20120310
  Receipt Date: 20111220
  Transmission Date: 20120608
  Serious: No
  Sender: FDA-Public Use
  Company Number: US-PFIZER INC-2011274120

PATIENT
  Age: 24 Year
  Sex: Male

DRUGS (5)
  1. MORPHINE [Concomitant]
     Dosage: 15 MG, AS NEEDED
     Route: 048
     Dates: start: 20110921
  2. XALKORI [Suspect]
     Indication: NON-SMALL CELL LUNG CANCER STAGE IV
     Dosage: 250 MG, 2X/DAY
     Dates: start: 20110911
  3. AMIODARONE [Concomitant]
     Dosage: 200 MG, 1/2 PILL ONCE DAILY
     Route: 048
     Dates: start: 20110925
  4. MAGNESIUM OXIDE [Concomitant]
     Dosage: 400 MG, 1X/DAY
     Route: 048
     Dates: start: 20110928
  5. LORAZEPAM [Concomitant]
     Dosage: 0.05 MG, AS NEEDED
     Route: 048
     Dates: start: 20110921

REACTIONS (1)
  - DERMATITIS ACNEIFORM [None]
